FAERS Safety Report 4773103-X (Version None)
Quarter: 2005Q3

REPORT INFORMATION
  Report Type: 
  Country: None (occurrence: None)
  Receive Date: 20050916
  Receipt Date: 20050906
  Transmission Date: 20060218
  Serious: Yes (Hospitalization, Other)
  Sender: FDA-Public Use
  Company Number: 2005124022

PATIENT
  Age: 32 Year
  Sex: Female

DRUGS (6)
  1. CETIRIZINE HCL [Suspect]
     Indication: ILL-DEFINED DISORDER
  2. CITALOPRAM HYDROBROMIDE [Suspect]
     Indication: ILL-DEFINED DISORDER
     Dosage: 60 MG
  3. IMOVANE (ZOPICLONE) [Suspect]
     Indication: ILL-DEFINED DISORDER
     Dosage: 22.5 MG
  4. NEXIUM [Suspect]
     Indication: ILL-DEFINED DISORDER
  5. BUDESONIDE [Suspect]
     Indication: ILL-DEFINED DISORDER
  6. AERIUS (DESLORATADINE) [Suspect]
     Indication: ILL-DEFINED DISORDER

REACTIONS (1)
  - RECTAL CANCER [None]
